FAERS Safety Report 5706856-4 (Version None)
Quarter: 2008Q2

REPORT INFORMATION
  Report Type: 
  Country: None (occurrence: None)
  Receive Date: 20080416
  Receipt Date: 20080407
  Transmission Date: 20081010
  Serious: Yes (Other)
  Sender: FDA-Public Use
  Company Number: SE-ALLERGAN-0713961US

PATIENT
  Age: 23 Year
  Sex: Male

DRUGS (10)
  1. BOTOX [Suspect]
     Indication: NEUROGENIC BLADDER
     Dosage: 300 UNITS, SINGLE
     Route: 030
     Dates: start: 20030101, end: 20030101
  2. BOTOX [Suspect]
     Dosage: 300 UNITS, SINGLE
     Route: 030
     Dates: start: 20030101, end: 20030101
  3. BOTOX [Suspect]
     Dosage: 150 UNITS, SINGLE
     Route: 030
  4. BOTOX [Suspect]
     Dosage: 150 UNITS, SINGLE
     Route: 030
     Dates: start: 20060101, end: 20060101
  5. BOTOX [Suspect]
     Dosage: 150 UNITS, SINGLE
     Route: 030
     Dates: start: 20061101, end: 20061101
  6. BOTOX [Suspect]
     Dosage: 175 UNITS, SINGLE
     Route: 030
     Dates: start: 20070101, end: 20070101
  7. BOTOX [Suspect]
     Dosage: 200 UNITS, SINGLE
     Route: 030
     Dates: start: 20070601, end: 20070601
  8. BOTOX [Suspect]
     Dosage: 250 UNITS, SINGLE
     Route: 030
     Dates: start: 20080101, end: 20080101
  9. BACLOFEN [Concomitant]
     Dosage: UNK, PRN
  10. TOLTERODINE TARTRATE [Concomitant]

REACTIONS (3)
  - HYPERREFLEXIA [None]
  - MUSCULAR WEAKNESS [None]
  - THERAPEUTIC RESPONSE DECREASED [None]
